FAERS Safety Report 23835250 (Version 1)
Quarter: 2024Q2

REPORT INFORMATION
  Report Type: Spontaneous
  Country: FR (occurrence: FR)
  Receive Date: 20240509
  Receipt Date: 20240509
  Transmission Date: 20240716
  Serious: Yes (Life-Threatening, Hospitalization, Other)
  Sender: FDA-Public Use
  Company Number: FR-JAZZ-2017-FR-009982

PATIENT
  Age: 2 Year
  Sex: Male
  Weight: 13 kg

DRUGS (39)
  1. DEFITELIO [Suspect]
     Active Substance: DEFIBROTIDE SODIUM
     Indication: Venoocclusive disease
     Dosage: 24 MG, QD
     Route: 042
     Dates: start: 20170717, end: 20170813
  2. DEFITELIO [Suspect]
     Active Substance: DEFIBROTIDE SODIUM
     Indication: Prophylaxis
     Dosage: 80 MG, QID
     Route: 042
     Dates: start: 20170717, end: 20170717
  3. MYCOPHENOLATE MOFETIL [Suspect]
     Active Substance: MYCOPHENOLATE MOFETIL
     Indication: Immunosuppression
     Dosage: 200 MG, TID
     Route: 042
     Dates: end: 20170821
  4. ACYCLOVIR [Concomitant]
     Active Substance: ACYCLOVIR
     Indication: Product used for unknown indication
     Dosage: 300 MG, QD
     Route: 048
  5. BACTRIM [Concomitant]
     Active Substance: SULFAMETHOXAZOLE\TRIMETHOPRIM
     Indication: Product used for unknown indication
     Dosage: 300 MG,  3 TIMES PER WEEK
     Route: 065
     Dates: end: 2017
  6. BACTRIM [Concomitant]
     Active Substance: SULFAMETHOXAZOLE\TRIMETHOPRIM
     Dosage: 300 MG, 3 TIMES PER WEEK
     Route: 065
     Dates: end: 2017
  7. CALCIUM GLUCONATE [Concomitant]
     Active Substance: CALCIUM GLUCONATE
     Indication: Product used for unknown indication
     Dosage: 1300 ML, QD
     Route: 065
  8. CALCIUM GLUCONATE [Concomitant]
     Active Substance: CALCIUM GLUCONATE
     Dosage: 1300 ML, QD
     Route: 065
  9. CYCLOSPORINE [Concomitant]
     Active Substance: CYCLOSPORINE
     Dosage: 30 MG, BID
     Dates: end: 2017
  10. CYCLOSPORINE [Concomitant]
     Active Substance: CYCLOSPORINE
     Indication: Product used for unknown indication
     Dosage: 30 MG, BID
     Route: 065
     Dates: end: 2017
  11. CLONAZEPAM [Concomitant]
     Active Substance: CLONAZEPAM
     Indication: Product used for unknown indication
     Dosage: 1 DRP, QD
     Route: 048
     Dates: end: 2017
  12. DEXCHLORPHENIRAMINE [Concomitant]
     Active Substance: DEXCHLORPHENIRAMINE
     Indication: Product used for unknown indication
     Dosage: UNK, TID, ? AMPOULE , TID
     Route: 042
  13. ESOMEPRAZOLE [Concomitant]
     Active Substance: ESOMEPRAZOLE
     Indication: Product used for unknown indication
     Dosage: 7.5 MG, QD
     Route: 042
     Dates: end: 2017
  14. FLUCONAZOLE [Concomitant]
     Active Substance: FLUCONAZOLE
     Indication: Product used for unknown indication
     Dosage: 75 MG, QD
     Route: 048
  15. GRANULOCYTE COLONY-STIMULATING FACTOR NOS [Concomitant]
     Active Substance: GRANULOCYTE COLONY-STIMULATING FACTOR NOS
     Indication: Product used for unknown indication
     Dosage: 75 ?G, QD
     Route: 058
     Dates: end: 2017
  16. HYDROXYZINE [Concomitant]
     Active Substance: HYDROXYZINE HYDROCHLORIDE
     Indication: Product used for unknown indication
     Dosage: 15 MG, QD
     Route: 048
     Dates: end: 2017
  17. IMMUNGLOBULIN [Concomitant]
     Indication: Product used for unknown indication
     Dosage: 2.5 G, QW (ON WEDNESDAY)
     Route: 065
     Dates: end: 2017
  18. MAGNESIUM CARBONATE [Concomitant]
     Active Substance: MAGNESIUM CARBONATE
     Indication: Product used for unknown indication
     Dosage: 1 DF, TID, AMPOULE
     Route: 048
  19. METOPIMAZINE [Concomitant]
     Active Substance: METOPIMAZINE
     Indication: Product used for unknown indication
     Dosage: 10 MG, QD
     Route: 042
  20. METRONIDAZOLE [Concomitant]
     Active Substance: METRONIDAZOLE
     Indication: Product used for unknown indication
     Dosage: 100 MG, QD
     Route: 048
     Dates: start: 20170821
  21. NALBUPHINE [Concomitant]
     Active Substance: NALBUPHINE
     Indication: Product used for unknown indication
     Dosage: 18 MG, QD
     Route: 042
     Dates: end: 2017
  22. NICARDIPINE [Concomitant]
     Active Substance: NICARDIPINE
     Indication: Product used for unknown indication
     Dosage: 15 MG, TID
     Route: 048
     Dates: end: 2017
  23. ONDANSETRON [Concomitant]
     Active Substance: ONDANSETRON
     Indication: Product used for unknown indication
     Dosage: 4 MG, BID
     Route: 042
     Dates: end: 2017
  24. ACETAMINOPHEN [Concomitant]
     Active Substance: ACETAMINOPHEN
     Indication: Product used for unknown indication
     Dosage: 200 MG, QD
     Route: 048
     Dates: end: 2017
  25. PENICILLIN V POTASSIUM [Concomitant]
     Active Substance: PENICILLIN V POTASSIUM
     Indication: Product used for unknown indication
     Dosage: 350000 IU, BID
     Route: 065
  26. PENICILLIN V POTASSIUM [Concomitant]
     Active Substance: PENICILLIN V POTASSIUM
     Dosage: 350000 IU, BID
     Route: 065
  27. RAMIPRIL [Concomitant]
     Active Substance: RAMIPRIL
     Dosage: 1 MG, QD
     Route: 065
  28. RAMIPRIL [Concomitant]
     Active Substance: RAMIPRIL
     Dosage: 1 MG, QD
     Route: 065
  29. RAMIPRIL [Concomitant]
     Active Substance: RAMIPRIL
     Dosage: 1.25 MG, ? TABLET DAILY IN THE EVENING
     Route: 065
  30. RAMIPRIL [Concomitant]
     Active Substance: RAMIPRIL
     Indication: Product used for unknown indication
     Dosage: 1.25 MG, HALF TABLET DAILY IN THE EVENING
     Route: 065
  31. SODIUM BICARBONATE [Concomitant]
     Active Substance: SODIUM BICARBONATE
     Indication: Product used for unknown indication
     Dosage: 1.4 %, QD
     Route: 065
  32. SOLU-MEDROL [Concomitant]
     Active Substance: METHYLPREDNISOLONE SODIUM SUCCINATE
     Indication: Product used for unknown indication
     Dosage: 10 MG, BID
     Route: 065
     Dates: end: 20170902
  33. SOLU-MEDROL [Concomitant]
     Active Substance: METHYLPREDNISOLONE SODIUM SUCCINATE
     Dosage: 10 MG, BID
     Route: 065
     Dates: end: 20170902
  34. SOLU-MEDROL [Concomitant]
     Active Substance: METHYLPREDNISOLONE SODIUM SUCCINATE
     Dosage: 8 MG, BID
     Route: 065
     Dates: start: 20170903
  35. SOLU-MEDROL [Concomitant]
     Active Substance: METHYLPREDNISOLONE SODIUM SUCCINATE
     Dosage: 8 MG, BID
     Route: 065
     Dates: start: 20170903
  36. URSODIOL [Concomitant]
     Active Substance: URSODIOL
     Dosage: 100 MG, BID
     Route: 065
     Dates: end: 2017
  37. URSODIOL [Concomitant]
     Active Substance: URSODIOL
     Indication: Product used for unknown indication
     Dosage: 100 MG, BID
     Route: 065
     Dates: end: 2017
  38. ERGOCALCIFEROL [Concomitant]
     Active Substance: ERGOCALCIFEROL
     Indication: Product used for unknown indication
     Dosage: 4 DRP, QD
     Route: 048
  39. CHOLECALCIFEROL [Concomitant]
     Active Substance: CHOLECALCIFEROL
     Indication: Product used for unknown indication
     Dosage: 4 DRP, QD
     Route: 048
     Dates: end: 2017

REACTIONS (12)
  - Graft versus host disease in skin [Unknown]
  - Neuralgia [Unknown]
  - Venoocclusive disease [Recovered/Resolved]
  - Mucosal inflammation [Recovered/Resolved]
  - Graft versus host disease in gastrointestinal tract [Unknown]
  - Febrile bone marrow aplasia [Unknown]
  - Off label use [Unknown]
  - Hypertension [Unknown]
  - Clostridium difficile infection [Recovered/Resolved]
  - Sepsis [Not Recovered/Not Resolved]
  - Vomiting [Not Recovered/Not Resolved]
  - Diarrhoea [Not Recovered/Not Resolved]

NARRATIVE: CASE EVENT DATE: 20170717
